FAERS Safety Report 25870315 (Version 3)
Quarter: 2025Q4

REPORT INFORMATION
  Report Type: Report from Study
  Country: US (occurrence: US)
  Receive Date: 20251001
  Receipt Date: 20251008
  Transmission Date: 20260117
  Serious: No
  Sender: PFIZER
  Company Number: US-PFIZER INC-202500193924

PATIENT
  Age: 74 Year
  Sex: Female

DRUGS (1)
  1. IBRANCE [Suspect]
     Active Substance: PALBOCICLIB
     Indication: Breast cancer female
     Dosage: 75 MG, CYCLIC (TAKE 1 TABLET BY MOUTH ONCE DAILY FOR 3 WEEKS, FOLLOWED BY 1 WEEK OFF)
     Route: 048

REACTIONS (4)
  - Immune system disorder [Unknown]
  - Dysgeusia [Unknown]
  - Fatigue [Unknown]
  - White blood cell count decreased [Unknown]
